FAERS Safety Report 18934949 (Version 1)
Quarter: 2021Q1

REPORT INFORMATION
  Report Type: Spontaneous
  Country: US (occurrence: US)
  Receive Date: 20210224
  Receipt Date: 20210224
  Transmission Date: 20210420
  Serious: Yes (Hospitalization)
  Sender: FDA-Public Use
  Company Number: US-AMNEAL PHARMACEUTICALS-2021-AMRX-00570

PATIENT
  Age: 61 Year
  Sex: Female

DRUGS (1)
  1. CLONIDINE HYDROCHLORIDE. [Suspect]
     Active Substance: CLONIDINE HYDROCHLORIDE
     Indication: HYPERTENSIVE URGENCY
     Dosage: 0.2 MG
     Route: 048

REACTIONS (2)
  - Cerebral ischaemia [Recovering/Resolving]
  - Hypotension [Recovering/Resolving]
